FAERS Safety Report 9364080 (Version 1)
Quarter: 2013Q2

REPORT INFORMATION
  Report Type: Report from Study
  Country: US (occurrence: US)
  Receive Date: 20130624
  Receipt Date: 20130624
  Transmission Date: 20140414
  Serious: Yes (Hospitalization, Other)
  Sender: FDA-Public Use
  Company Number: US-009507513-1306USA007691

PATIENT
  Age: 58 Year
  Sex: Male

DRUGS (8)
  1. TEMODAR [Suspect]
     Indication: GLIOBLASTOMA MULTIFORME
     Dosage: 180 MG, QD
     Route: 048
     Dates: start: 20130312, end: 20130424
  2. BEVACIZUMAB [Suspect]
     Indication: GLIOBLASTOMA MULTIFORME
     Dosage: 1200 MG, ONCE IN TWO WEEKS
     Route: 042
     Dates: start: 20130325, end: 20130422
  3. LEVETIRACETAM [Concomitant]
     Dosage: 1 G, BID
     Route: 048
  4. PRAVASTATIN SODIUM [Concomitant]
     Dosage: 40 MG, QD
     Route: 048
  5. ACETAMINOPHEN [Concomitant]
     Dosage: 500 MG, Q6H
  6. SENNOSIDES [Concomitant]
     Dosage: UNK UNK, QD
  7. NALTREXONE [Concomitant]
     Dosage: UNK UNK, QD
     Route: 048
  8. DECADRON (DEXAMETHASONE) [Concomitant]
     Dosage: UNK

REACTIONS (6)
  - Convulsion [Recovered/Resolved]
  - Pneumonia [Recovered/Resolved]
  - Pulmonary embolism [Recovered/Resolved]
  - Rash pustular [Recovered/Resolved]
  - Platelet count decreased [Recovered/Resolved]
  - Neutrophil count decreased [Recovered/Resolved]
